FAERS Safety Report 8360123 (Version 3)
Quarter: 2012Q4

REPORT INFORMATION
  Report Type: 
  Country: GB (occurrence: None)
  Receive Date: 20120117
  Receipt Date: 20120816
  Transmission Date: 20130627
  Serious: Yes (Hospitalization)
  Sender: FDA-Public Use
  Company Number: 2012AP000048

PATIENT
  Age: 54 Year
  Sex: Female

DRUGS (6)
  1. LATANOPROST [Suspect]
     Indication: OPEN ANGLE GLAUCOMA
     Dosage: EYE_DROP;OPH
     Route: 047
     Dates: end: 2010
  2. COCAINE [Suspect]
     Dates: end: 2010
  3. TRAMADOL HYDROCHLORIDE [Suspect]
     Dates: end: 2010
  4. HYDROCODONE BITARTRATE AND ACETAMINOPHEN [Suspect]
     Dates: end: 2010
  5. DIAZEPAM [Suspect]
     Dates: end: 2010
  6. ETHANOL [Suspect]
     Dates: end: 2010

REACTIONS (8)
  - Atrioventricular block second degree [None]
  - Fatigue [None]
  - Dyspnoea exertional [None]
  - Palpitations [None]
  - Mitral valve incompetence [None]
  - Lethargy [None]
  - Dizziness [None]
  - Bradycardia [None]
